FAERS Safety Report 7640443-6 (Version None)
Quarter: 2011Q3

REPORT INFORMATION
  Report Type: 
  Country: None (occurrence: None)
  Receive Date: 20110728
  Receipt Date: 20110720
  Transmission Date: 20111222
  Serious: Yes (Other)
  Sender: FDA-Public Use
  Company Number: US-BIOGENIDEC-2011BI027023

PATIENT
  Age: 73 Year
  Sex: Male

DRUGS (2)
  1. AVONEX [Suspect]
     Indication: MULTIPLE SCLEROSIS
     Route: 030
  2. PREDNISONE [Concomitant]
     Indication: BLINDNESS
     Dates: start: 19940101

REACTIONS (2)
  - NECK PAIN [None]
  - HYPERTENSION [None]
